FAERS Safety Report 17498335 (Version 2)
Quarter: 2021Q2

REPORT INFORMATION
  Report Type: Spontaneous
  Country: FR (occurrence: FR)
  Receive Date: 20200304
  Receipt Date: 20210524
  Transmission Date: 20210716
  Serious: Yes (Hospitalization)
  Sender: FDA-Public Use
  Company Number: FR-PFIZER INC-2020090642

PATIENT
  Age: 77 Year
  Sex: Male
  Weight: 63 kg

DRUGS (5)
  1. (ERYASPASE) L?ASPARAGINASE ENCAPSULATED IN RED BLOOD CELLS [Concomitant]
     Active Substance: ASPARAGINASE
     Indication: DUCTAL ADENOCARCINOMA OF PANCREAS
     Dosage: 100 IU/KG, CYCLIC: EVERY 2 WEEKS
     Route: 041
     Dates: start: 20190314
  2. ACTISKENAN [Concomitant]
     Active Substance: MORPHINE SULFATE
     Indication: ABDOMINAL PAIN
     Dosage: 5 MG, UNK
     Route: 048
     Dates: start: 201802
  3. SKENAN [Concomitant]
     Active Substance: MORPHINE SULFATE
     Indication: ABDOMINAL PAIN
     Dosage: 20 MG, UNK
     Route: 048
     Dates: start: 201802
  4. ABRAXANE [Suspect]
     Active Substance: PACLITAXEL
     Indication: DUCTAL ADENOCARCINOMA OF PANCREAS
     Dosage: 125 MG/M2, UNK
     Route: 041
     Dates: start: 20190314, end: 20190410
  5. GEMCITABINE HYDROCHLORIDE. [Suspect]
     Active Substance: GEMCITABINE HYDROCHLORIDE
     Indication: DUCTAL ADENOCARCINOMA OF PANCREAS
     Dosage: 1000 MG/M2, UNK
     Route: 041
     Dates: start: 20190314, end: 20190410

REACTIONS (5)
  - C-reactive protein increased [Unknown]
  - Haemoglobin decreased [Unknown]
  - Lymphocyte count decreased [Unknown]
  - Platelet count decreased [Unknown]
  - General physical health deterioration [Recovered/Resolved]

NARRATIVE: CASE EVENT DATE: 20190417
